FAERS Safety Report 15139368 (Version 2)
Quarter: 2018Q3

REPORT INFORMATION
  Report Type: Report from Study
  Country: TR (occurrence: TR)
  Receive Date: 20180713
  Receipt Date: 20180719
  Transmission Date: 20181010
  Serious: Yes (Death)
  Sender: FDA-Public Use
  Company Number: PHHY2018TR039661

PATIENT
  Age: 47 Year
  Sex: Female
  Weight: 78 kg

DRUGS (3)
  1. MITOXANTRONE [Concomitant]
     Active Substance: MITOXANTRONE HYDROCHLORIDE
     Indication: ACUTE MYELOID LEUKAEMIA
     Dosage: 20 MG, QD
     Route: 065
     Dates: start: 20160531, end: 20180602
  2. PKC412 [Suspect]
     Active Substance: MIDOSTAURIN
     Indication: ACUTE MYELOID LEUKAEMIA
     Dosage: 2 DF, BID
     Route: 048
     Dates: start: 20180606, end: 20180617
  3. ARA?C [Concomitant]
     Active Substance: CYTARABINE
     Indication: ACUTE MYELOID LEUKAEMIA
     Dosage: 3 G/M2, UNK
     Route: 065
     Dates: start: 20180531, end: 20180602

REACTIONS (1)
  - Pseudomonal sepsis [Fatal]

NARRATIVE: CASE EVENT DATE: 20180617
